FAERS Safety Report 6218714-X (Version None)
Quarter: 2009Q2

REPORT INFORMATION
  Report Type: 
  Country: None (occurrence: None)
  Receive Date: 20090608
  Receipt Date: 20090528
  Transmission Date: 20091009
  Serious: Yes (Hospitalization)
  Sender: FDA-Public Use
  Company Number: US-AMGEN-US344055

PATIENT
  Sex: Female

DRUGS (10)
  1. PANITUMUMAB [Suspect]
     Indication: COLORECTAL CANCER
     Route: 042
     Dates: start: 20090323
  2. FLUOROURACIL [Concomitant]
  3. IRINOTECAN HCL [Concomitant]
  4. LEUCOVORIN CALCIUM [Concomitant]
  5. SIMVASTATIN [Concomitant]
  6. COZAAR [Concomitant]
  7. LYRICA [Concomitant]
  8. LEVOTHYROXINE [Concomitant]
  9. METFORMIN HYDROCHLORIDE [Concomitant]
  10. UNSPECIFIED OPHTHALMIC PREPARATION [Concomitant]

REACTIONS (14)
  - ABDOMINAL DISTENSION [None]
  - COLITIS [None]
  - CONSTIPATION [None]
  - DEHYDRATION [None]
  - DIARRHOEA [None]
  - ESCHERICHIA URINARY TRACT INFECTION [None]
  - HYPOTENSION [None]
  - INSOMNIA [None]
  - NAUSEA [None]
  - NEUTROPENIA [None]
  - PELVIC PAIN [None]
  - RENAL FAILURE [None]
  - SMALL INTESTINAL OBSTRUCTION [None]
  - VOMITING [None]
